FAERS Safety Report 10195775 (Version 1)
Quarter: 2014Q2

REPORT INFORMATION
  Report Type: Spontaneous
  Country: US (occurrence: None)
  Receive Date: 20140522
  Receipt Date: 20140522
  Transmission Date: 20141212
  Serious: Yes (Other)
  Sender: FDA-Public Use
  Company Number: AUR-APL-2014-05929

PATIENT
  Age: 53 Year
  Sex: Male
  Weight: 95.24 kg

DRUGS (4)
  1. METFORMIN [Suspect]
     Indication: DIABETES MELLITUS
     Dosage: 2000 MG (1000 MG, 2 IN 1 D), ORAL
     Route: 048
  2. GLIPIZIDE [Suspect]
     Indication: DIABETES MELLITUS
     Dosage: 20 MG (10 MG, 2 IN 1 D), ORAL
     Route: 048
  3. LANTUS [Suspect]
     Indication: DIABETES MELLITUS
     Dosage: 30 UNITS SHOT, 1X/DAY AT NIGHT (1 IN 1 D), UNKNOWN
  4. LYRICA (PREGABALIN) [Concomitant]

REACTIONS (1)
  - Diabetes mellitus inadequate control [None]
